FAERS Safety Report 8574867-X (Version None)
Quarter: 2012Q2

REPORT INFORMATION
  Report Type: 
  Country: None (occurrence: None)
  Receive Date: 20120423
  Receipt Date: 20100209
  Transmission Date: 20120825
  Serious: Yes (Hospitalization, Other)
  Sender: FDA-Public Use
  Company Number: PHEH2009US15657

PATIENT
  Age: 74 Year
  Sex: Female
  Weight: 70 kg

DRUGS (12)
  1. SYNTHROID [Concomitant]
  2. ZOLOFT [Concomitant]
  3. LASIX [Concomitant]
  4. FOLTX (CYANOCOBALAMIN, FOLIC ACID, PYRIDOXINE) [Concomitant]
  5. MULTIVITAMINS (ASCORBIC ACID, ERGOCALCIFEROL, FOLIC ACID, NICOTINAMIDE [Concomitant]
  6. POTASSIUM (POTASSIUM) [Concomitant]
  7. LISINOPRIL [Concomitant]
  8. VITAMIN D [Concomitant]
  9. EXJADE [Suspect]
     Indication: ANAEMIA
     Dosage: 1375 MG DAILY, ORAL
     Route: 048
     Dates: start: 20091014, end: 20091123
  10. EXJADE [Suspect]
     Indication: IRON OVERLOAD
     Dosage: 1375 MG DAILY, ORAL
     Route: 048
     Dates: start: 20091014, end: 20091123
  11. CALCIUM CARBONATE [Concomitant]
  12. PREMARIN [Concomitant]

REACTIONS (7)
  - DIARRHOEA [None]
  - RECTAL HAEMORRHAGE [None]
  - BLOOD UREA INCREASED [None]
  - GASTROINTESTINAL ULCER [None]
  - RENAL DISORDER [None]
  - INTESTINAL RESECTION [None]
  - BLOOD CREATININE INCREASED [None]
